FAERS Safety Report 7795551-6 (Version None)
Quarter: 2011Q4

REPORT INFORMATION
  Report Type: 
  Country: None (occurrence: None)
  Receive Date: 20111004
  Receipt Date: 20110922
  Transmission Date: 20120403
  Serious: Yes (Other)
  Sender: FDA-Public Use
  Company Number: US-BAYER-2011-052471

PATIENT
  Age: 28 Year
  Sex: Female
  Weight: 86.168 kg

DRUGS (3)
  1. LEXAPRO [Concomitant]
     Indication: ANXIETY
     Dosage: 20 MG, QD
     Route: 048
     Dates: start: 20080101
  2. YAZ [Suspect]
     Dosage: UNK
     Dates: start: 20080201, end: 20080101
  3. DROSPIRENONE AND ETHINYL ESTRADIOL [Suspect]
     Dosage: UNK
     Dates: start: 20080101, end: 20090901

REACTIONS (7)
  - PAIN [None]
  - INJURY [None]
  - PAIN IN EXTREMITY [None]
  - ANXIETY [None]
  - DEEP VEIN THROMBOSIS [None]
  - OEDEMA PERIPHERAL [None]
  - ANHEDONIA [None]
